FAERS Safety Report 17710585 (Version 4)
Quarter: 2022Q2

REPORT INFORMATION
  Report Type: Spontaneous
  Country: US (occurrence: US)
  Receive Date: 20200427
  Receipt Date: 20220504
  Transmission Date: 20220721
  Serious: Yes (Other)
  Sender: FDA-Public Use
  Company Number: US-PERRIGO-20US005920

PATIENT
  Sex: Male
  Weight: 119.27 kg

DRUGS (19)
  1. PREVACID 24 HR [Suspect]
     Active Substance: LANSOPRAZOLE
     Indication: Product used for unknown indication
     Dosage: UNK
     Route: 005
  2. PREVACID [Suspect]
     Active Substance: LANSOPRAZOLE
     Indication: Gastrooesophageal reflux disease
     Dosage: UNK
     Route: 065
     Dates: start: 1995, end: 2013
  3. NEXIUM [Suspect]
     Active Substance: ESOMEPRAZOLE MAGNESIUM
     Indication: Gastrooesophageal reflux disease
     Dosage: UNKNOWN, UNKNOWN
     Route: 065
     Dates: start: 2001, end: 2014
  4. NEXIUM 24HR [Suspect]
     Active Substance: ESOMEPRAZOLE MAGNESIUM
     Indication: Gastrooesophageal reflux disease
     Dosage: UNK
     Route: 065
     Dates: start: 2014, end: 2017
  5. OMEPRAZOLE [Suspect]
     Active Substance: OMEPRAZOLE
     Indication: Gastrooesophageal reflux disease
     Dosage: 20 MG, QD
     Route: 065
     Dates: start: 2013
  6. OMEPRAZOLE [Suspect]
     Active Substance: OMEPRAZOLE
     Indication: Dyspepsia
  7. PRILOSEC [Suspect]
     Active Substance: OMEPRAZOLE MAGNESIUM
     Indication: Gastrooesophageal reflux disease
     Dosage: UNKNOWN, UNKNOWN
     Route: 065
     Dates: start: 1989, end: 2013
  8. PRILOSEC [Suspect]
     Active Substance: OMEPRAZOLE MAGNESIUM
     Dosage: 20 MG, BID
     Route: 065
  9. PRILOSEC [Suspect]
     Active Substance: OMEPRAZOLE MAGNESIUM
     Dosage: 20 MG, QD
     Route: 048
  10. OMEPRAZOLE [Suspect]
     Active Substance: OMEPRAZOLE
     Indication: Product used for unknown indication
     Dosage: 20 MG, BID
     Route: 048
     Dates: start: 20170406
  11. OMEPRAZOLE [Suspect]
     Active Substance: OMEPRAZOLE
     Dosage: 20 MG, QD
     Route: 048
     Dates: start: 20190823
  12. OMEPRAZOLE [Suspect]
     Active Substance: OMEPRAZOLE
     Dosage: 20 MG, BID
     Route: 048
     Dates: start: 20200109
  13. OMEPRAZOLE [Suspect]
     Active Substance: OMEPRAZOLE
     Dosage: 20 MG
     Route: 065
     Dates: start: 20180802, end: 20190214
  14. OMEPRAZOLE [Suspect]
     Active Substance: OMEPRAZOLE
     Indication: Product used for unknown indication
     Dosage: 20 MG, BID
     Route: 048
     Dates: start: 20001108, end: 20110826
  15. OMEPRAZOLE [Suspect]
     Active Substance: OMEPRAZOLE
     Dosage: 20 MG, QD
     Route: 065
     Dates: start: 19981014
  16. OMEPRAZOLE [Suspect]
     Active Substance: OMEPRAZOLE
     Indication: Dyspepsia
     Dosage: 20 MG, BID
     Route: 048
     Dates: start: 20130104, end: 20200109
  17. OMEPRAZOLE [Suspect]
     Active Substance: OMEPRAZOLE
     Indication: Gastrooesophageal reflux disease
  18. PREVACID [Suspect]
     Active Substance: LANSOPRAZOLE
     Indication: Product used for unknown indication
     Dosage: 30 MG, BID
     Route: 048
     Dates: start: 20011220, end: 20040206
  19. LANSOPRAZOLE [Suspect]
     Active Substance: LANSOPRAZOLE
     Indication: Product used for unknown indication
     Dosage: 30 MG, BID
     Route: 065
     Dates: start: 20000527, end: 20010821

REACTIONS (7)
  - Chronic kidney disease [Not Recovered/Not Resolved]
  - Renal impairment [Unknown]
  - Renal injury [Unknown]
  - Bipolar disorder [Unknown]
  - Renal disorder [Unknown]
  - Dysuria [Unknown]
  - Essential hypertension [Unknown]

NARRATIVE: CASE EVENT DATE: 19890101
